FAERS Safety Report 11420894 (Version 1)
Quarter: 2015Q3

REPORT INFORMATION
  Report Type: Spontaneous
  Country: US (occurrence: US)
  Receive Date: 20150826
  Receipt Date: 20150826
  Transmission Date: 20151125
  Serious: No
  Sender: FDA-Public Use
  Company Number: US-GUERBET LLC-1041393

PATIENT
  Age: 65 Year
  Sex: Female

DRUGS (1)
  1. HEXABRIX [Suspect]
     Active Substance: IOXAGLATE MEGLUMINE\IOXAGLATE SODIUM
     Dates: start: 20111223, end: 20111223

REACTIONS (2)
  - Electrocardiogram ST segment abnormal [Unknown]
  - Urticaria [Unknown]
